FAERS Safety Report 22837995 (Version 2)
Quarter: 2023Q4

REPORT INFORMATION
  Report Type: Spontaneous
  Country: US (occurrence: US)
  Receive Date: 20230818
  Receipt Date: 20231018
  Transmission Date: 20240110
  Serious: Yes (Hospitalization)
  Sender: FDA-Public Use
  Company Number: US-JNJFOC-20230823661

PATIENT
  Age: 28 Year
  Sex: Female

DRUGS (2)
  1. SPRAVATO [Suspect]
     Active Substance: ESKETAMINE
     Indication: Major depression
  2. SPRAVATO [Suspect]
     Active Substance: ESKETAMINE
     Dates: start: 20230804, end: 20230804

REACTIONS (1)
  - Adverse event [Recovered/Resolved]

NARRATIVE: CASE EVENT DATE: 20230804
